FAERS Safety Report 21536325 (Version 1)
Quarter: 2022Q4

REPORT INFORMATION
  Report Type: Spontaneous
  Country: US (occurrence: US)
  Receive Date: 20221101
  Receipt Date: 20221101
  Transmission Date: 20230113
  Serious: No
  Sender: FDA-Public Use
  Company Number: US-TEVA-2022-US-2817550

PATIENT
  Age: 51 Year
  Sex: Female
  Weight: 53 kg

DRUGS (2)
  1. AJOVY [Suspect]
     Active Substance: FREMANEZUMAB-VFRM
     Indication: Migraine
     Dosage: 225/1.5 MG/ML, MONTHLY
     Route: 065
     Dates: start: 202204
  2. AJOVY [Suspect]
     Active Substance: FREMANEZUMAB-VFRM

REACTIONS (5)
  - Injection site vesicles [Recovered/Resolved]
  - Injection site rash [Recovered/Resolved]
  - Injection site pain [Unknown]
  - Liquid product physical issue [Unknown]
  - Injection site reaction [Recovered/Resolved]

NARRATIVE: CASE EVENT DATE: 20220401
